FAERS Safety Report 25967594 (Version 1)
Quarter: 2025Q4

REPORT INFORMATION
  Report Type: Spontaneous
  Country: US (occurrence: US)
  Receive Date: 20251028
  Receipt Date: 20251028
  Transmission Date: 20260118
  Serious: No
  Sender: GLAXOSMITHKLINE
  Company Number: US-GSKCCFUS-Case-02383193_AE-125667

PATIENT
  Sex: Male

DRUGS (1)
  1. JEMPERLI [Suspect]
     Active Substance: DOSTARLIMAB-GXLY
     Indication: Product used for unknown indication
     Dosage: UNK

REACTIONS (2)
  - Aspartate aminotransferase increased [Unknown]
  - Pain [Unknown]
